FAERS Safety Report 4638726-7 (Version None)
Quarter: 2005Q2

REPORT INFORMATION
  Report Type: 
  Country: None (occurrence: None)
  Receive Date: 20050418
  Receipt Date: 20050418
  Transmission Date: 20051028
  Serious: Yes (Death)
  Sender: FDA-Public Use
  Company Number: None

PATIENT
  Age: 64 Year
  Sex: Female
  Weight: 77.7 kg

DRUGS (4)
  1. OXALIPLATIN Q 3 WKS IV [Suspect]
     Indication: BILE DUCT CANCER
     Dosage: 130 MG/M2
     Dates: start: 20050124, end: 20050222
  2. DOCETAXEL WKLY 2 OF 3 IV [Suspect]
     Indication: BILE DUCT CANCER
     Dosage: 30 MG/M2
     Dates: start: 20050124, end: 20050222
  3. MORPHINE [Concomitant]
  4. CELEBREX [Concomitant]

REACTIONS (1)
  - DISEASE PROGRESSION [None]
